FAERS Safety Report 17377182 (Version 1)
Quarter: 2020Q1

REPORT INFORMATION
  Report Type: Spontaneous
  Country: US (occurrence: US)
  Receive Date: 20200206
  Receipt Date: 20200206
  Transmission Date: 20200409
  Serious: No
  Sender: FDA-Public Use
  Company Number: US-ALLERGAN-1939623US

PATIENT
  Age: 26 Year
  Sex: Female

DRUGS (2)
  1. GENERESS FE [Suspect]
     Active Substance: ETHINYL ESTRADIOL\NORETHINDRONE
     Indication: CYST
     Dosage: UNK
     Route: 048
     Dates: start: 2013, end: 20190924
  2. GENERESS FE [Suspect]
     Active Substance: ETHINYL ESTRADIOL\NORETHINDRONE
     Indication: CONTRACEPTION

REACTIONS (5)
  - Off label use [Unknown]
  - Product packaging issue [Unknown]
  - Haemorrhage [Not Recovered/Not Resolved]
  - Weight increased [Unknown]
  - Muscle spasms [Unknown]

NARRATIVE: CASE EVENT DATE: 201908
